FAERS Safety Report 9075494 (Version 1)
Quarter: 2013Q1

REPORT INFORMATION
  Report Type: Report from Study
  Country: US (occurrence: US)
  Receive Date: 20130131
  Receipt Date: 20130131
  Transmission Date: 20140127
  Serious: No
  Sender: FDA-Public Use
  Company Number: US-ABBOTT-12P-163-0947659-00

PATIENT
  Age: 37 None
  Sex: Male
  Weight: 90.8 kg

DRUGS (1)
  1. HUMIRA 40 MG/0.8 ML PEN [Suspect]
     Indication: CROHN^S DISEASE
     Dates: start: 201111

REACTIONS (5)
  - Device malfunction [Recovered/Resolved]
  - Device malfunction [Recovered/Resolved]
  - Injection site haemorrhage [Recovered/Resolved]
  - Injection site haemorrhage [Recovered/Resolved]
  - Injection site pain [Recovered/Resolved]
